FAERS Safety Report 6563785-4 (Version None)
Quarter: 2010Q1

REPORT INFORMATION
  Report Type: 
  Country: None (occurrence: None)
  Receive Date: 20100130
  Receipt Date: 20091229
  Transmission Date: 20100710
  Serious: No
  Sender: FDA-Public Use
  Company Number: US-ABBOTT-10P-163-0617294-00

PATIENT
  Sex: Female
  Weight: 61.29 kg

DRUGS (10)
  1. HUMIRA [Suspect]
     Indication: JUVENILE ARTHRITIS
     Route: 058
     Dates: start: 20091120, end: 20091127
  2. HUMIRA [Suspect]
     Route: 058
     Dates: start: 20091219
  3. METHOTREXATE [Concomitant]
     Indication: JUVENILE ARTHRITIS
     Route: 048
  4. METHOTREXATE [Concomitant]
     Route: 048
  5. TOLMETIN SODIUM [Concomitant]
     Indication: JUVENILE ARTHRITIS
     Route: 048
  6. FOLIC ACID [Concomitant]
     Indication: VITAMIN SUPPLEMENTATION
     Route: 048
  7. MULTI-VITAMIN [Concomitant]
     Indication: VITAMIN SUPPLEMENTATION
     Route: 048
  8. VITAMIN E [Concomitant]
     Indication: VITAMIN SUPPLEMENTATION
     Route: 048
  9. LOVAZA [Concomitant]
     Indication: MEDICAL DIET
     Dosage: BID
     Route: 048
  10. L-LYSINE [Concomitant]
     Indication: MEDICAL DIET
     Route: 048

REACTIONS (3)
  - OROPHARYNGEAL PAIN [None]
  - PYREXIA [None]
  - STAPHYLOCOCCAL INFECTION [None]
